FAERS Safety Report 10519281 (Version 1)
Quarter: 2014Q4

REPORT INFORMATION
  Report Type: Spontaneous
  Country: US (occurrence: None)
  Receive Date: 20141014
  Receipt Date: 20141014
  Transmission Date: 20150528
  Serious: Yes (Disabling, Other)
  Sender: FDA-Public Use
  Company Number: None

PATIENT
  Age: 61 Year
  Sex: Male
  Weight: 77.11 kg

DRUGS (1)
  1. CYMBALTA [Suspect]
     Active Substance: DULOXETINE HYDROCHLORIDE
     Indication: NEUROPATHY PERIPHERAL
     Dosage: 1 ONCE DAILY TAKEN BY MOUTH
     Route: 048
     Dates: start: 20140415, end: 20140910

REACTIONS (10)
  - Abnormal dreams [None]
  - Feeling abnormal [None]
  - Hypoaesthesia [None]
  - Partner stress [None]
  - Drug withdrawal syndrome [None]
  - Hallucination, auditory [None]
  - Balance disorder [None]
  - Impaired work ability [None]
  - Nocturia [None]
  - Seizure [None]

NARRATIVE: CASE EVENT DATE: 20140912
